FAERS Safety Report 6168875-6 (Version None)
Quarter: 2009Q2

REPORT INFORMATION
  Report Type: 
  Country: None (occurrence: None)
  Receive Date: 20090427
  Receipt Date: 20090415
  Transmission Date: 20091009
  Serious: Yes (Other)
  Sender: FDA-Public Use
  Company Number: JP-PFIZER INC-2009199868

PATIENT

DRUGS (1)
  1. SULFASALAZINE [Suspect]
     Indication: RHEUMATOID ARTHRITIS

REACTIONS (2)
  - DISSEMINATED INTRAVASCULAR COAGULATION [None]
  - THROMBOCYTOPENIA [None]
